FAERS Safety Report 10241574 (Version 1)
Quarter: 2014Q1

REPORT INFORMATION
  Report Type: Spontaneous
  Country: US (occurrence: None)
  Receive Date: 20140306
  Receipt Date: 20140306
  Transmission Date: 20141002
  Serious: Yes (Other)
  Sender: FDA-Public Use
  Company Number: 163-21880-13053821

PATIENT
  Age: 66 Year
  Sex: Female
  Weight: 54.43 kg

DRUGS (20)
  1. REVLIMID (LENALIDOMIDE) (CAPSULES) [Suspect]
     Indication: PLASMA CELL MYELOMA
     Dosage: UNKNOWN
     Route: 048
     Dates: start: 20110111, end: 20120111
  2. ASPIRIN (ACETYLSALICYLIC ACID) (UNKNOWN) (ACETYLSALICYLIC ACID) [Concomitant]
  3. AVITA (TRETINOIN) (UNKNOWN) [Concomitant]
  4. CALTRATE D (CALCIUM CARBONATE) (UNKNOWN) [Concomitant]
  5. COLACE (DOCUSATE SODIUM) (UNKNOWN) [Concomitant]
  6. DECADRON (DEXAMETHASONE) (UNKNOWN) [Concomitant]
  7. DILTIAZEM (UNKNOWN) [Concomitant]
  8. FENTANYL (UNKNOWN [Concomitant]
  9. LIPITOR (ATORVASTATIN) (UNKNOWN) [Concomitant]
  10. LOSARTAN (UNKNOWN) [Concomitant]
  11. MELPHALAN (UNKNOWN) [Concomitant]
  12. MULTIVITAMINS (UNKNOWN) [Concomitant]
  13. PREMARIN (ESTROGENS CONJUGATED) (UNKNOWN) [Concomitant]
  14. SENNA (UNKNOWN) [Concomitant]
  15. VALTREX (VALACICLOVIR HYDROCHLORIDE) (UNKNOWN) [Concomitant]
  16. ZETIA (EZETIMIBE) (UNKNOWN) [Concomitant]
  17. ZOFRAN (ONDANSETRON HYDROCHLORIDE) (UNKNOWN) [Concomitant]
  18. ZOLOFT (SERTRALINE HYDROCHLORIDE) (UNKNOWN) [Concomitant]
  19. ZOMETA (ZOLEDRONIC ACID) (UNKNOWN) [Concomitant]
  20. HORMONE REPLACEMENT THERAPY (HORMONES) (UNKNOWN) [Concomitant]

REACTIONS (3)
  - Hair growth abnormal [None]
  - Constipation [None]
  - Drug ineffective [None]
